FAERS Safety Report 4382276-2 (Version None)
Quarter: 2004Q2

REPORT INFORMATION
  Report Type: 
  Country: None (occurrence: None)
  Receive Date: 20040615
  Receipt Date: 20040603
  Transmission Date: 20050107
  Serious: Yes (Death)
  Sender: FDA-Public Use
  Company Number: MK200406-0078-1

PATIENT
  Age: 31 Year
  Sex: Male

DRUGS (1)
  1. HYDROMORPHONE HCL [Suspect]
     Dosage: 26MG, EVERY HOUR

REACTIONS (11)
  - AGITATION [None]
  - DELIRIUM [None]
  - DISORIENTATION [None]
  - GRAND MAL CONVULSION [None]
  - HYPERREFLEXIA [None]
  - METASTATIC NEOPLASM [None]
  - MYOCLONUS [None]
  - NAUSEA [None]
  - RENAL FAILURE ACUTE [None]
  - STATUS EPILEPTICUS [None]
  - VOMITING [None]
